FAERS Safety Report 5490269-7 (Version None)
Quarter: 2007Q4

REPORT INFORMATION
  Report Type: 
  Country: None (occurrence: None)
  Receive Date: 20071018
  Receipt Date: 20071008
  Transmission Date: 20080405
  Serious: No
  Sender: FDA-Public Use
  Company Number: SG-BAXTER-2007BH008408

PATIENT
  Age: 50 Year
  Sex: Female

DRUGS (7)
  1. TISSUCOL/TISSEEL KIT STIM4 [Suspect]
     Indication: FACE LIFT
     Route: 061
     Dates: start: 20070517, end: 20070517
  2. AUGMENTIN                               /UNK/ [Concomitant]
     Indication: DRUG USE FOR UNKNOWN INDICATION
     Route: 065
  3. PANADIENE [Concomitant]
     Indication: DRUG USE FOR UNKNOWN INDICATION
     Dosage: DOSE UNIT:UNKNOWN
     Route: 065
  4. ARCOXIA [Concomitant]
     Indication: DRUG USE FOR UNKNOWN INDICATION
     Dosage: DOSE UNIT:UNKNOWN
     Route: 065
  5. CHIROCAINE [Concomitant]
     Indication: LOCAL ANAESTHESIA
     Route: 065
  6. SODIUM CHLORIDE [Concomitant]
     Indication: LOCAL ANAESTHESIA
     Route: 065
  7. ADRENALINE [Concomitant]
     Indication: DRUG USE FOR UNKNOWN INDICATION
     Route: 065

REACTIONS (1)
  - NECROSIS ISCHAEMIC [None]
